FAERS Safety Report 6074377-8 (Version None)
Quarter: 2009Q1

REPORT INFORMATION
  Report Type: 
  Country: None (occurrence: None)
  Receive Date: 20090211
  Receipt Date: 20081230
  Transmission Date: 20090719
  Serious: Yes (Other)
  Sender: FDA-Public Use
  Company Number: US-PFIZER INC-2008003659

PATIENT
  Sex: Female
  Weight: 70.909 kg

DRUGS (10)
  1. CHANTIX [Suspect]
     Indication: SMOKING CESSATION THERAPY
     Dosage: UNK
     Dates: start: 20070101
  2. VITAMINS [Concomitant]
  3. GLUCOTROL XL [Concomitant]
  4. LANTUS [Concomitant]
  5. HUMALOG [Concomitant]
  6. PAXIL [Concomitant]
  7. XANAX [Concomitant]
  8. ASCORBIC ACID [Concomitant]
  9. VITAMIN E [Concomitant]
  10. MULTI-VITAMINS [Concomitant]

REACTIONS (4)
  - ABNORMAL DREAMS [None]
  - BLOOD GLUCOSE INCREASED [None]
  - CHEST PAIN [None]
  - DRUG INEFFECTIVE [None]
